FAERS Safety Report 17219675 (Version 1)
Quarter: 2019Q4

REPORT INFORMATION
  Report Type: Spontaneous
  Country: JP (occurrence: JP)
  Receive Date: 20191231
  Receipt Date: 20191231
  Transmission Date: 20200122
  Serious: Yes (Other)
  Sender: FDA-Public Use
  Company Number: JP-BRISTOL-MYERS SQUIBB COMPANY-BMS-2019-040850

PATIENT
  Age: 65 Year
  Sex: Male

DRUGS (1)
  1. OPDIVO [Suspect]
     Active Substance: NIVOLUMAB
     Indication: GASTRIC CANCER
     Dosage: DOSE UNSPECIFIED
     Route: 041

REACTIONS (4)
  - Pericardial effusion [Unknown]
  - Pleural effusion [Unknown]
  - Hypothyroidism [Recovered/Resolved]
  - Oedema [Unknown]
